FAERS Safety Report 19023945 (Version 2)
Quarter: 2021Q2

REPORT INFORMATION
  Report Type: Spontaneous
  Country: US (occurrence: US)
  Receive Date: 20210317
  Receipt Date: 20210414
  Transmission Date: 20210717
  Serious: No
  Sender: FDA-Public Use
  Company Number: US-GALDERMA-US2020049255

PATIENT
  Age: 17 Year
  Sex: Male

DRUGS (5)
  1. PROACTIV MD DEEP CLEANSING FACE WASH [Concomitant]
     Active Substance: COSMETICS
     Indication: ACNE
     Route: 061
     Dates: start: 202005, end: 20201023
  2. MULTIVITAMINS [Concomitant]
     Active Substance: VITAMINS
     Indication: PRODUCT USED FOR UNKNOWN INDICATION
     Route: 065
  3. PROACTIV MD ADAPALENE ACNE TREATMENT [Suspect]
     Active Substance: ADAPALENE
     Indication: ACNE
     Dosage: 0.1%
     Route: 061
     Dates: start: 202005, end: 20201023
  4. PROACTIV DEEP CLEANSING WASH [Concomitant]
     Active Substance: SALICYLIC ACID
     Indication: ACNE
     Route: 061
     Dates: start: 202005, end: 20201023
  5. PROACTIV OIL FREE MOISTURE SPF 15 [Concomitant]
     Indication: ACNE
     Route: 061
     Dates: start: 202005, end: 20201023

REACTIONS (5)
  - Inappropriate schedule of product administration [Recovered/Resolved]
  - Skin exfoliation [Recovering/Resolving]
  - Acne [Recovering/Resolving]
  - Drug ineffective [Unknown]
  - Overdose [Recovered/Resolved]

NARRATIVE: CASE EVENT DATE: 202005
